FAERS Safety Report 6815286-3 (Version None)
Quarter: 2010Q3

REPORT INFORMATION
  Report Type: 
  Country: None (occurrence: None)
  Receive Date: 20100701
  Receipt Date: 20100701
  Transmission Date: 20110219
  Serious: Yes (Hospitalization)
  Sender: FDA-Public Use
  Company Number: None

PATIENT
  Age: 34 Year
  Sex: Female
  Weight: 68.0396 kg

DRUGS (2)
  1. YAZ [Suspect]
     Indication: ACNE
     Dosage: 28 DAILY PO
     Route: 048
     Dates: start: 20030101, end: 20090901
  2. YAZ [Suspect]
     Indication: CONTRACEPTION
     Dosage: 28 DAILY PO
     Route: 048
     Dates: start: 20030101, end: 20090901

REACTIONS (5)
  - ABDOMINAL PAIN [None]
  - CONSTIPATION [None]
  - GALLBLADDER DISORDER [None]
  - GASTROOESOPHAGEAL REFLUX DISEASE [None]
  - NAUSEA [None]
